FAERS Safety Report 5633018-1 (Version None)
Quarter: 2008Q1

REPORT INFORMATION
  Report Type: 
  Country: None (occurrence: None)
  Receive Date: 20080221
  Receipt Date: 20080214
  Transmission Date: 20080703
  Serious: No
  Sender: FDA-Public Use
  Company Number: SE-BAXTER-2008BH001326

PATIENT
  Age: 57 Year
  Sex: Male

DRUGS (1)
  1. ADVATE [Suspect]
     Indication: DRUG USE FOR UNKNOWN INDICATION
     Dosage: DOSE UNIT:UNKNOWN
     Route: 065

REACTIONS (1)
  - DRUG INEFFECTIVE [None]
